FAERS Safety Report 22149557 (Version 2)
Quarter: 2023Q2

REPORT INFORMATION
  Report Type: Spontaneous
  Country: JP (occurrence: JP)
  Receive Date: 20230329
  Receipt Date: 20230407
  Transmission Date: 20230721
  Serious: Yes (Other)
  Sender: FDA-Public Use
  Company Number: JP-TAKEDA-2023TJP003824

PATIENT
  Age: 80 Year
  Sex: Female

DRUGS (11)
  1. TEDUGLUTIDE [Suspect]
     Active Substance: TEDUGLUTIDE
     Indication: Product used for unknown indication
     Dosage: 3.85 MILLIGRAM, QD
     Route: 058
     Dates: start: 20230320, end: 20230331
  2. TEDUGLUTIDE [Suspect]
     Active Substance: TEDUGLUTIDE
     Indication: Product used for unknown indication
     Dosage: 3.85 MILLIGRAM, QD
     Route: 058
     Dates: start: 20230320, end: 20230331
  3. TEDUGLUTIDE [Suspect]
     Active Substance: TEDUGLUTIDE
     Indication: Product used for unknown indication
     Dosage: 3.85 MILLIGRAM, QD
     Route: 058
     Dates: start: 20230320, end: 20230331
  4. TEDUGLUTIDE [Suspect]
     Active Substance: TEDUGLUTIDE
     Indication: Product used for unknown indication
     Dosage: 3.85 MILLIGRAM, QD
     Route: 058
     Dates: start: 20230320, end: 20230331
  5. BONVIVA [Concomitant]
     Active Substance: IBANDRONATE SODIUM
     Dosage: UNK
     Route: 065
  6. URSODIOL [Concomitant]
     Active Substance: URSODIOL
     Dosage: UNK
     Route: 048
  7. ALBUMIN TANNATE [Concomitant]
     Active Substance: ALBUMIN TANNATE
     Dosage: UNK
     Route: 048
  8. TEPRENONE [Concomitant]
     Active Substance: TEPRENONE
     Dosage: UNK
     Route: 048
  9. BERBERINE\GERANIUM [Concomitant]
     Active Substance: BERBERINE\GERANIUM
     Dosage: UNK
     Route: 048
  10. LANSOPRAZOLE [Concomitant]
     Active Substance: LANSOPRAZOLE
     Dosage: UNK
     Route: 048
  11. ISOSORBIDE DINITRATE [Concomitant]
     Active Substance: ISOSORBIDE DINITRATE
     Dosage: UNK
     Route: 065

REACTIONS (1)
  - Vascular device infection [Recovered/Resolved]

NARRATIVE: CASE EVENT DATE: 20230321
